FAERS Safety Report 6375514-8 (Version None)
Quarter: 2009Q3

REPORT INFORMATION
  Report Type: 
  Country: None (occurrence: None)
  Receive Date: 20090924
  Receipt Date: 20090915
  Transmission Date: 20100115
  Serious: Yes (Hospitalization, Other)
  Sender: FDA-Public Use
  Company Number: US-ELI_LILLY_AND_COMPANY-US200909003720

PATIENT
  Sex: Female

DRUGS (5)
  1. FORTEO [Suspect]
     Indication: OSTEOPOROSIS
     Dosage: 20 UG, DAILY (1/D)
     Dates: start: 20090818
  2. TRAMADOL [Concomitant]
  3. TEMAZEPAM [Concomitant]
  4. IMITREX [Concomitant]
  5. CALCIUM [Concomitant]

REACTIONS (3)
  - ABDOMINAL STRANGULATED HERNIA [None]
  - CONSTIPATION [None]
  - INTESTINAL GANGRENE [None]
